FAERS Safety Report 4826270-3 (Version None)
Quarter: 2005Q4

REPORT INFORMATION
  Report Type: 
  Country: None (occurrence: None)
  Receive Date: 20051014
  Receipt Date: 20050725
  Transmission Date: 20060501
  Serious: No
  Sender: FDA-Public Use
  Company Number: 2005SP002057

PATIENT
  Age: 93 Year
  Sex: Female
  Weight: 46.7205 kg

DRUGS (5)
  1. LUNESTA [Suspect]
     Indication: INSOMNIA
     Dosage: 2 MG; HS; ORAL
     Route: 048
     Dates: start: 20050701
  2. AMBIEN [Concomitant]
  3. SINGULAIR [Concomitant]
  4. LOTREL [Concomitant]
  5. NEBULIZER [Concomitant]

REACTIONS (2)
  - CONFUSIONAL STATE [None]
  - SOMNOLENCE [None]
